FAERS Safety Report 9339491 (Version 2)
Quarter: 2013Q4

REPORT INFORMATION
  Report Type: Spontaneous
  Country: US (occurrence: US)
  Receive Date: 20130610
  Receipt Date: 20131129
  Transmission Date: 20140711
  Serious: Yes (Death, Life-Threatening, Hospitalization, Other)
  Sender: FDA-Public Use
  Company Number: US-ELI_LILLY_AND_COMPANY-US201306000272

PATIENT
  Age: 69 Year
  Sex: Female

DRUGS (42)
  1. FORTEO [Suspect]
     Indication: OSTEOPOROSIS
     Dosage: UNK, QD
     Route: 065
     Dates: start: 201204, end: 20121001
  2. METFORMIN [Concomitant]
     Indication: PRODUCT USED FOR UNKNOWN INDICATION
     Dosage: 500 MG, EACH EVENING
     Route: 065
  3. METFORMIN [Concomitant]
     Dosage: 1000 MG, BID
     Route: 065
     Dates: start: 20130120, end: 20130122
  4. METFORMIN [Concomitant]
     Dosage: 1000 MG, EACH MORNING
     Route: 065
  5. POTASSIUM [Concomitant]
     Indication: PRODUCT USED FOR UNKNOWN INDICATION
     Dosage: 10 MEQ, BID
     Route: 065
  6. POTASSIUM [Concomitant]
     Dosage: 10 MEQ, BID
     Route: 048
     Dates: start: 20130117, end: 20130122
  7. POTASSIUM [Concomitant]
     Dosage: 20 MEQ, SINGLE
     Route: 048
     Dates: start: 20130117, end: 20130117
  8. POTASSIUM [Concomitant]
     Dosage: 40 MEQ, SINGLE
     Route: 048
     Dates: start: 20130114, end: 20130114
  9. POTASSIUM [Concomitant]
     Dosage: 80 MEQ, SINGLE
     Route: 048
     Dates: start: 20130116, end: 20130116
  10. POTASSIUM [Concomitant]
     Dosage: 20 MEQ, TID
     Route: 048
  11. RISPERIDONE [Concomitant]
     Indication: PRODUCT USED FOR UNKNOWN INDICATION
     Dosage: 1 MG, EACH EVENING
     Route: 048
  12. VANTIN                             /01043502/ [Concomitant]
     Indication: PRODUCT USED FOR UNKNOWN INDICATION
     Dosage: 200 MG, BID
     Route: 048
  13. TRAZODONE [Concomitant]
     Indication: PRODUCT USED FOR UNKNOWN INDICATION
     Dosage: 50 MG, EACH EVENING
     Route: 065
  14. TRAZODONE [Concomitant]
     Dosage: 50 MG, EACH EVENING
     Route: 050
  15. HYDROCODONE BITARTRATE AND ACETAMINOPHEN [Concomitant]
     Indication: PAIN
     Dosage: UNK, PRN
     Route: 048
     Dates: start: 20130117
  16. LOVASTATIN [Concomitant]
     Indication: PRODUCT USED FOR UNKNOWN INDICATION
     Dosage: 40 MG, EACH EVENING
     Route: 048
     Dates: start: 20130114, end: 20130114
  17. LOVASTATIN [Concomitant]
     Dosage: 40 MG, EACH EVENING
     Route: 050
     Dates: start: 20130115, end: 20130116
  18. LOVASTATIN [Concomitant]
     Dosage: 40 MG, EACH EVENING
     Route: 048
     Dates: start: 20130117, end: 20130121
  19. LOVASTATIN [Concomitant]
     Dosage: 40 MG, EACH EVENING
     Route: 065
  20. ALLOPURINOL [Concomitant]
     Indication: PRODUCT USED FOR UNKNOWN INDICATION
     Dosage: 100 MG, QD
     Route: 048
     Dates: start: 20130118, end: 20130122
  21. ALLOPURINOL [Concomitant]
     Dosage: 100 MG, QD
     Route: 065
  22. ASPIRIN [Concomitant]
     Indication: PRODUCT USED FOR UNKNOWN INDICATION
     Dosage: 81 MG, SINGLE
     Route: 048
     Dates: start: 20130115, end: 20130115
  23. ASPIRIN [Concomitant]
     Dosage: 81 MG, QD
     Route: 048
     Dates: start: 20130118, end: 20130122
  24. ASPIRIN [Concomitant]
     Dosage: 81 MG, QD
     Route: 065
  25. LEVOTHYROXINE [Concomitant]
     Indication: PRODUCT USED FOR UNKNOWN INDICATION
     Dosage: 88 UG, QD
     Route: 048
     Dates: start: 20130114, end: 20130115
  26. LEVOTHYROXINE [Concomitant]
     Dosage: 88 UG, QD
     Route: 050
     Dates: start: 20130116, end: 20130117
  27. LEVOTHYROXINE [Concomitant]
     Dosage: 88 UG, QD
     Route: 048
     Dates: start: 20130118, end: 20130122
  28. LEVOTHYROXINE [Concomitant]
     Dosage: 88 UG, QD
     Route: 065
  29. COMBIVENT [Concomitant]
     Indication: PRODUCT USED FOR UNKNOWN INDICATION
     Dosage: 6 DF, EVERY 6 HRS
     Route: 007
     Dates: start: 20130114, end: 20130116
  30. COMBIVENT [Concomitant]
     Dosage: 2 DF, EVERY 6 HRS
     Route: 055
     Dates: start: 20130118, end: 20130122
  31. COMBIVENT [Concomitant]
     Dosage: 2 DF, QID
     Route: 055
  32. COMBIVENT [Concomitant]
     Dosage: 3 ML, EVERY 4 HRS
     Route: 055
     Dates: end: 20130301
  33. PREDNISONE [Concomitant]
     Indication: PRODUCT USED FOR UNKNOWN INDICATION
     Dosage: 5 MG, QD
     Route: 048
     Dates: start: 20130114, end: 20130115
  34. PREDNISONE [Concomitant]
     Dosage: 5 MG, QD
     Route: 050
     Dates: start: 20130116, end: 20130117
  35. PREDNISONE [Concomitant]
     Dosage: 5 MG, QD
     Route: 048
     Dates: start: 20130118, end: 20130122
  36. PREDNISONE [Concomitant]
     Dosage: 5 MG, QD
     Route: 065
  37. METHOTREXATE [Concomitant]
     Indication: PRODUCT USED FOR UNKNOWN INDICATION
     Dosage: 20 MG, WEEKLY (1/W)
     Route: 065
  38. GLYBURIDE [Concomitant]
     Indication: PRODUCT USED FOR UNKNOWN INDICATION
     Dosage: UNK UNK, UNKNOWN
     Route: 065
  39. SULINDAC [Concomitant]
     Indication: PRODUCT USED FOR UNKNOWN INDICATION
     Dosage: UNK UNK, UNKNOWN
     Route: 065
  40. FOLIC ACID [Concomitant]
     Indication: PRODUCT USED FOR UNKNOWN INDICATION
     Dosage: UNK UNK, UNKNOWN
     Route: 065
  41. DARVOCET                           /00220901/ [Concomitant]
     Indication: PRODUCT USED FOR UNKNOWN INDICATION
     Dosage: UNK UNK, UNKNOWN
     Route: 065
  42. FOSAMAX [Concomitant]
     Indication: PRODUCT USED FOR UNKNOWN INDICATION
     Dosage: UNK UNK, UNKNOWN
     Route: 065

REACTIONS (13)
  - Cardiac arrest [Fatal]
  - Myxoedema coma [Fatal]
  - Cardiac arrest [Recovered/Resolved]
  - Aortic aneurysm [Unknown]
  - Acute respiratory failure [Recovered/Resolved]
  - Pneumonia staphylococcal [Unknown]
  - Pneumonia [Unknown]
  - Pneumonia aspiration [Unknown]
  - Encephalopathy [Recovered/Resolved]
  - Encephalopathy [Unknown]
  - Convulsion [Unknown]
  - Convulsion [Unknown]
  - Weight decreased [Unknown]
